FAERS Safety Report 8583214 (Version 3)
Quarter: 2014Q2

REPORT INFORMATION
  Report Type: Spontaneous
  Country: US (occurrence: US)
  Receive Date: 20120529
  Receipt Date: 20140527
  Transmission Date: 20141212
  Serious: Yes (Life-Threatening, Hospitalization, Other)
  Sender: FDA-Public Use
  Company Number: US-BAYER-2012-051550

PATIENT
  Age: 40 Year
  Sex: Female
  Weight: 84.1 kg

DRUGS (11)
  1. YAZ [Suspect]
     Indication: MENORRHAGIA
     Dosage: UNK
     Route: 048
     Dates: start: 20110202, end: 20110930
  2. GIANVI [Suspect]
     Dosage: UNK
     Dates: start: 20110930, end: 20120330
  3. ATENOLOL [Concomitant]
  4. TOPAMAX [Concomitant]
     Dosage: 50 MG, UNK
  5. SUMATRIPTAN [Concomitant]
     Dosage: 100 MG, UNK
  6. OXYCODONE/APAP [Concomitant]
     Dosage: 7.5-325 TAB
  7. HYDROCODONE W/APAP [Concomitant]
     Dosage: 5-325 MG
  8. KENALOG [Concomitant]
  9. MARCAINE [Concomitant]
  10. NORCO [Concomitant]
  11. IBUPROFEN [Concomitant]

REACTIONS (12)
  - Deep vein thrombosis [None]
  - Pulmonary embolism [None]
  - Acute respiratory failure [None]
  - Cardiogenic shock [None]
  - Hepatic necrosis [None]
  - Renal failure acute [None]
  - Injury [None]
  - Pain [None]
  - Emotional distress [None]
  - Depression [None]
  - Fear of death [None]
  - Nervousness [None]
